FAERS Safety Report 11449934 (Version 1)
Quarter: 2015Q3

REPORT INFORMATION
  Report Type: Spontaneous
  Country: US (occurrence: US)
  Receive Date: 20150903
  Receipt Date: 20150903
  Transmission Date: 20151125
  Serious: No
  Sender: FDA-Public Use
  Company Number: US-ROCHE-1080754

PATIENT
  Age: 29 Year
  Sex: Female

DRUGS (3)
  1. COPEGUS [Suspect]
     Active Substance: RIBAVIRIN
     Indication: CHRONIC HEPATITIS C
     Route: 048
     Dates: start: 20111031
  2. PEGASYS [Suspect]
     Active Substance: PEGINTERFERON ALFA-2A
     Indication: CHRONIC HEPATITIS C
     Route: 058
     Dates: start: 20111031
  3. XYZAL [Concomitant]
     Active Substance: LEVOCETIRIZINE DIHYDROCHLORIDE
     Indication: HYPERSENSITIVITY

REACTIONS (5)
  - Dental caries [Not Recovered/Not Resolved]
  - Tooth demineralisation [Not Recovered/Not Resolved]
  - Alopecia [Not Recovered/Not Resolved]
  - White blood cell count decreased [Unknown]
  - Blood thyroid stimulating hormone increased [Recovered/Resolved]

NARRATIVE: CASE EVENT DATE: 20120229
